FAERS Safety Report 4332302-1 (Version None)
Quarter: 2004Q2

REPORT INFORMATION
  Report Type: 
  Country: None (occurrence: None)
  Receive Date: 20040405
  Receipt Date: 20040325
  Transmission Date: 20050107
  Serious: Yes (Death, Life-Threatening)
  Sender: FDA-Public Use
  Company Number: MY-MERCK-0403MYS00007

PATIENT
  Age: 50 Year
  Sex: Male

DRUGS (3)
  1. CANCIDAS [Suspect]
     Indication: CANDIDIASIS
     Route: 041
     Dates: start: 20040318, end: 20040318
  2. CANCIDAS [Suspect]
     Route: 041
     Dates: start: 20040319, end: 20040320
  3. FLUCONAZOLE [Concomitant]
     Indication: CANDIDIASIS
     Route: 065

REACTIONS (1)
  - DEATH [None]
